FAERS Safety Report 6829727-9 (Version None)
Quarter: 2010Q3

REPORT INFORMATION
  Report Type: 
  Country: None (occurrence: None)
  Receive Date: 20100709
  Receipt Date: 20070521
  Transmission Date: 20110219
  Serious: No
  Sender: FDA-Public Use
  Company Number: US-PFIZER INC-2007013765

PATIENT
  Sex: Male
  Weight: 95.3 kg

DRUGS (7)
  1. CHANTIX [Suspect]
     Indication: SMOKING CESSATION THERAPY
     Dates: start: 20070209
  2. DEPAKOTE [Concomitant]
  3. ALPRAZOLAM [Concomitant]
  4. FLUPHENAZINE HCL [Concomitant]
  5. MULTI-VITAMINS [Concomitant]
  6. FLONASE [Concomitant]
  7. NEXIUM [Concomitant]
     Indication: NAUSEA

REACTIONS (5)
  - ABDOMINAL DISTENSION [None]
  - CHANGE OF BOWEL HABIT [None]
  - DECREASED ACTIVITY [None]
  - FEELING ABNORMAL [None]
  - NAUSEA [None]
